FAERS Safety Report 17316529 (Version 1)
Quarter: 2020Q1

REPORT INFORMATION
  Report Type: Spontaneous
  Country: US (occurrence: US)
  Receive Date: 20200124
  Receipt Date: 20200124
  Transmission Date: 20200409
  Serious: Yes (Hospitalization, Disabling)
  Sender: FDA-Public Use
  Company Number: US-JNJFOC-20200125135

PATIENT
  Age: 46 Year
  Sex: Male

DRUGS (1)
  1. INVOKANA [Suspect]
     Active Substance: CANAGLIFLOZIN
     Indication: TYPE 2 DIABETES MELLITUS
     Route: 048
     Dates: start: 20141211, end: 20160502

REACTIONS (3)
  - Leg amputation [Unknown]
  - Osteomyelitis [Not Recovered/Not Resolved]
  - Diabetic foot infection [Unknown]

NARRATIVE: CASE EVENT DATE: 201503
